FAERS Safety Report 9999924 (Version 1)
Quarter: 2014Q1

REPORT INFORMATION
  Report Type: Spontaneous
  Country: US (occurrence: US)
  Receive Date: 20140312
  Receipt Date: 20140312
  Transmission Date: 20141002
  Serious: No
  Sender: FDA-Public Use
  Company Number: US-009507513-1403USA001582

PATIENT
  Sex: Male
  Weight: 72.56 kg

DRUGS (1)
  1. MIRALAX [Suspect]
     Indication: CONSTIPATION
     Dosage: 17 G, QD
     Route: 048
     Dates: start: 201306, end: 20131001

REACTIONS (2)
  - Flatulence [Recovered/Resolved]
  - Incorrect drug administration duration [Unknown]
